FAERS Safety Report 18172741 (Version 1)
Quarter: 2020Q3

REPORT INFORMATION
  Report Type: Spontaneous
  Country: US (occurrence: US)
  Receive Date: 20200820
  Receipt Date: 20200820
  Transmission Date: 20201103
  Serious: Yes (Other)
  Sender: FDA-Public Use
  Company Number: US-LUPIN PHARMACEUTICALS INC.-2020-04902

PATIENT
  Age: 40 Year
  Sex: Female
  Weight: 46 kg

DRUGS (4)
  1. MYCOPHENOLATE [Concomitant]
     Active Substance: MYCOPHENOLIC ACID
     Indication: LUPUS NEPHRITIS
     Dosage: UNK
     Route: 065
  2. HYDROXYCHLOROQUINE [Suspect]
     Active Substance: HYDROXYCHLOROQUINE
     Indication: LUPUS NEPHRITIS
     Dosage: 300 MILLIGRAM, QD (6.5MG/KG PER DAY)
     Route: 065
  3. PREDNISONE. [Concomitant]
     Active Substance: PREDNISONE
     Indication: LUPUS NEPHRITIS
     Dosage: UNK
     Route: 065
  4. HYDROXYCHLOROQUINE [Suspect]
     Active Substance: HYDROXYCHLOROQUINE
     Dosage: 400 MILLIGRAM, QD (8.2MG/KG PER DAY (200 MG TWICE DAILY))
     Route: 065

REACTIONS (7)
  - Cardiomegaly [Unknown]
  - Retinopathy [Unknown]
  - End stage renal disease [Recovered/Resolved]
  - Maculopathy [Unknown]
  - Toxicity to various agents [Recovering/Resolving]
  - Blindness [Unknown]
  - Prescribed overdose [Unknown]
